FAERS Safety Report 10306163 (Version 2)
Quarter: 2014Q3

REPORT INFORMATION
  Report Type: Report from Study
  Country: US (occurrence: US)
  Receive Date: 20140715
  Receipt Date: 20140715
  Transmission Date: 20150326
  Serious: Yes (Other)
  Sender: FDA-Public Use
  Company Number: US-BRISTOL-MYERS SQUIBB COMPANY-20768016

PATIENT
  Age: 64 Year
  Sex: Male
  Weight: 95 kg

DRUGS (1)
  1. IPILIMUMAB [Suspect]
     Active Substance: IPILIMUMAB
     Indication: MALIGNANT MELANOMA
     Dosage: IND:3 MG/KG OVER 90 MINS, Q3 WKS X4 DOSES?MAIN:3 MG/KG OVER 90 MINS, Q12 WKS ON WKS 24,36,48,60
     Route: 042
     Dates: start: 20131009, end: 20131120

REACTIONS (3)
  - Hyponatraemia [Unknown]
  - Syncope [Unknown]
  - Hypophysitis [Unknown]

NARRATIVE: CASE EVENT DATE: 20131210
